FAERS Safety Report 11690744 (Version 1)
Quarter: 2015Q4

REPORT INFORMATION
  Report Type: Spontaneous
  Country: FR (occurrence: FR)
  Receive Date: 20151102
  Receipt Date: 20151102
  Transmission Date: 20160304
  Serious: Yes (Hospitalization, Other)
  Sender: FDA-Public Use
  Company Number: FR-INDIVIOR-INDV-084728-2015

PATIENT
  Age: 41 Year
  Sex: Male

DRUGS (3)
  1. ALCOHOL. [Suspect]
     Active Substance: ALCOHOL
     Indication: PRODUCT USED FOR UNKNOWN INDICATION
     Dosage: UNKNOWN
     Route: 065
  2. SUBUTEX [Suspect]
     Active Substance: BUPRENORPHINE HYDROCHLORIDE
     Indication: PRODUCT USED FOR UNKNOWN INDICATION
     Dosage: 2 DF, UNKNOWN
     Route: 045
  3. COCAINE [Suspect]
     Active Substance: COCAINE
     Indication: PRODUCT USED FOR UNKNOWN INDICATION
     Dosage: 5 AND 10 RAILS, UNKNOWN
     Route: 065

REACTIONS (10)
  - Drug abuse [Unknown]
  - Sunburn [Unknown]
  - Suicidal ideation [Unknown]
  - Alcohol abuse [Unknown]
  - Malaise [Recovered/Resolved]
  - Depressed mood [Unknown]
  - Overdose [Unknown]
  - Intentional product use issue [Unknown]
  - Rhabdomyolysis [Unknown]
  - Mydriasis [Recovered/Resolved]
